FAERS Safety Report 18973813 (Version 2)
Quarter: 2021Q2

REPORT INFORMATION
  Report Type: Other
  Country: US (occurrence: US)
  Receive Date: 20210305
  Receipt Date: 20210403
  Transmission Date: 20210717
  Serious: Yes (Hospitalization)
  Sender: FDA-Public Use
  Company Number: US-ROCHE-2782415

PATIENT
  Sex: Male
  Weight: 85.3 kg

DRUGS (12)
  1. XOLAIR [Suspect]
     Active Substance: OMALIZUMAB
     Indication: ASTHMA
     Dosage: INJECT 375MG SUBCUTANEOUSLY EVERY 2 WEEK(S)?STRENGTH: 75 MG
     Route: 058
  2. XOLAIR [Suspect]
     Active Substance: OMALIZUMAB
  3. XOLAIR [Suspect]
     Active Substance: OMALIZUMAB
     Dosage: INJECT 375 MG SUBCUTANEOUSLY EVERY 2 WEEK(S)?STRENGTH: 150 MG
     Route: 058
  4. XOLAIR [Suspect]
     Active Substance: OMALIZUMAB
  5. XOLAIR [Suspect]
     Active Substance: OMALIZUMAB
  6. XOLAIR [Suspect]
     Active Substance: OMALIZUMAB
     Dosage: INJECT 375MG SUBCUTANEOUSLY EVERY 2 WEEK(S)?STRENGTH: 75 MG
     Route: 058
  7. XOLAIR [Suspect]
     Active Substance: OMALIZUMAB
  8. XOLAIR [Suspect]
     Active Substance: OMALIZUMAB
  9. XOLAIR [Suspect]
     Active Substance: OMALIZUMAB
  10. XOLAIR [Suspect]
     Active Substance: OMALIZUMAB
  11. XOLAIR [Suspect]
     Active Substance: OMALIZUMAB
     Indication: ASTHMA
     Dosage: INJECT 375MG SUBCUTANEOUSLY EVERY 2 WEEK(S)?STRENGTH: 150 MG
     Route: 058
  12. XOLAIR [Suspect]
     Active Substance: OMALIZUMAB

REACTIONS (3)
  - COVID-19 [Unknown]
  - Off label use [Unknown]
  - Asthma [Unknown]
